FAERS Safety Report 4441725-1 (Version None)
Quarter: 2004Q3

REPORT INFORMATION
  Report Type: 
  Country: None (occurrence: None)
  Receive Date: 20040907
  Receipt Date: 20040825
  Transmission Date: 20050211
  Serious: Yes (Other)
  Sender: FDA-Public Use
  Company Number: US-JNJFOC-20040809287

PATIENT
  Sex: Female
  Weight: 52.16 kg

DRUGS (3)
  1. REMICADE [Suspect]
     Indication: CROHN'S DISEASE
     Route: 042
  2. VICODIN [Concomitant]
  3. VICODIN [Concomitant]
     Indication: PAIN

REACTIONS (3)
  - BLINDNESS [None]
  - PARAESTHESIA [None]
  - TREMOR [None]
